FAERS Safety Report 13874504 (Version 1)
Quarter: 2017Q3

REPORT INFORMATION
  Report Type: Spontaneous
  Country: US (occurrence: US)
  Receive Date: 20170816
  Receipt Date: 20170816
  Transmission Date: 20171127
  Serious: No
  Sender: FDA-Public Use
  Company Number: US-ROCHE-1127407

PATIENT
  Sex: Female

DRUGS (4)
  1. LUCENTIS [Suspect]
     Active Substance: RANIBIZUMAB
     Indication: AGE-RELATED MACULAR DEGENERATION
     Route: 050
  2. LUCENTIS [Suspect]
     Active Substance: RANIBIZUMAB
     Route: 050
  3. LUCENTIS [Suspect]
     Active Substance: RANIBIZUMAB
     Route: 050
  4. LUCENTIS [Suspect]
     Active Substance: RANIBIZUMAB
     Route: 050

REACTIONS (14)
  - Upper respiratory tract congestion [Unknown]
  - Eye disorder [Unknown]
  - Eye inflammation [Unknown]
  - Eye swelling [Unknown]
  - Swelling [Unknown]
  - Abnormal sensation in eye [Unknown]
  - Soft tissue injury [Unknown]
  - Headache [Unknown]
  - Eye pain [Unknown]
  - Foreign body in eye [Unknown]
  - Dry age-related macular degeneration [Unknown]
  - Oropharyngeal pain [Unknown]
  - Foreign body sensation in eyes [Unknown]
  - Gastrooesophageal reflux disease [Unknown]
